FAERS Safety Report 20855959 (Version 1)
Quarter: 2022Q2

REPORT INFORMATION
  Report Type: Spontaneous
  Country: US (occurrence: US)
  Receive Date: 20220520
  Receipt Date: 20220520
  Transmission Date: 20220721
  Serious: Yes (Hospitalization, Other)
  Sender: FDA-Public Use
  Company Number: US-BoehringerIngelheim-2022-BI-170736

PATIENT
  Age: 72 Year
  Sex: Male

DRUGS (1)
  1. JARDIANCE [Suspect]
     Active Substance: EMPAGLIFLOZIN
     Indication: Type 2 diabetes mellitus
     Dates: start: 2014

REACTIONS (7)
  - Pancreatic carcinoma [Recovered/Resolved]
  - Fall [Recovered/Resolved]
  - Fall [Unknown]
  - Aortic valve disease [Recovered/Resolved]
  - Lung neoplasm [Recovered/Resolved]
  - Cerebral haemorrhage [Recovered/Resolved]
  - Fall [Unknown]

NARRATIVE: CASE EVENT DATE: 20180101
